FAERS Safety Report 6073485-5 (Version None)
Quarter: 2009Q1

REPORT INFORMATION
  Report Type: 
  Country: None (occurrence: None)
  Receive Date: 20090211
  Receipt Date: 20090111
  Transmission Date: 20090719
  Serious: No
  Sender: FDA-Public Use
  Company Number: US-BAYER-200910723NA

PATIENT
  Age: 22 Year
  Sex: Female

DRUGS (1)
  1. MIRENA [Suspect]
     Indication: CONTRACEPTION
     Route: 015
     Dates: start: 20081104

REACTIONS (5)
  - ABDOMINAL DISTENSION [None]
  - ACNE [None]
  - BREAST TENDERNESS [None]
  - MALAISE [None]
  - SINUS DISORDER [None]
